FAERS Safety Report 6357683-9 (Version None)
Quarter: 2009Q3

REPORT INFORMATION
  Report Type: 
  Country: None (occurrence: None)
  Receive Date: 20090916
  Receipt Date: 20090908
  Transmission Date: 20100115
  Serious: No
  Sender: FDA-Public Use
  Company Number: GB-BRISTOL-MYERS SQUIBB COMPANY-14773030

PATIENT
  Age: 1 Year

DRUGS (3)
  1. ABILIFY [Suspect]
     Dosage: DURATION 18 MONTHS TO 2 YEARS
     Route: 064
  2. DEXAMETHASONE [Suspect]
     Route: 064
  3. DEXTROAMPHETAMINE SULFATE [Suspect]
     Route: 064

REACTIONS (2)
  - HEAD DEFORMITY [None]
  - PLAGIOCEPHALY [None]
